FAERS Safety Report 9135558 (Version 1)
Quarter: 2013Q1

REPORT INFORMATION
  Report Type: Spontaneous
  Country: US (occurrence: US)
  Receive Date: 20130219
  Receipt Date: 20130219
  Transmission Date: 20140127
  Serious: No
  Sender: FDA-Public Use
  Company Number: US-BRISTOL-MYERS SQUIBB COMPANY-16767121

PATIENT
  Age: 54 Year
  Sex: Female
  Weight: 54.42 kg

DRUGS (3)
  1. ABATACEPT SUBQ INJECTION 125MG/ML [Suspect]
     Indication: RHEUMATOID ARTHRITIS
     Dosage: LAST DATE OF INJECTION:  28JUN2012?5TH INJ
     Route: 058
  2. METHOTREXATE [Concomitant]
  3. VITAMINS [Concomitant]

REACTIONS (1)
  - Drug dose omission [Unknown]
